FAERS Safety Report 9939727 (Version 1)
Quarter: 2014Q1

REPORT INFORMATION
  Report Type: Report from Study
  Country: US (occurrence: US)
  Receive Date: 20140303
  Receipt Date: 20140303
  Transmission Date: 20141002
  Serious: No
  Sender: FDA-Public Use
  Company Number: US-ABBVIE-13P-163-1033277-00

PATIENT
  Age: 25 Year
  Sex: Male

DRUGS (6)
  1. HUMIRA [Suspect]
     Indication: COLITIS ULCERATIVE
     Dates: start: 20121011
  2. LIALDA [Concomitant]
     Indication: COLITIS
  3. ATIVAN [Concomitant]
     Indication: PANIC ATTACK
     Dosage: TOOK EARLIER THIS WEEK
  4. SUBOXONE [Concomitant]
     Indication: PAIN
  5. AMBIEN [Concomitant]
     Indication: INSOMNIA
     Dosage: AT NIGHT
  6. AMITRIPTYLINE [Concomitant]
     Indication: INSOMNIA

REACTIONS (2)
  - Throat irritation [Not Recovered/Not Resolved]
  - Cough [Not Recovered/Not Resolved]
